FAERS Safety Report 9275534 (Version 1)
Quarter: 2013Q1

REPORT INFORMATION
  Report Type: Spontaneous
  Country: JP (occurrence: None)
  Receive Date: 20121109
  Receipt Date: 20121109
  Transmission Date: 20140127
  Serious: Yes (Other)
  Sender: FDA-Public Use
  Company Number: 2012S1000646

PATIENT
  Sex: Male

DRUGS (2)
  1. CUBICIN (DAPTOMYCIN) [Suspect]
     Route: 042
     Dates: start: 20120506, end: 20120520
  2. VANCOMYCIN [Concomitant]

REACTIONS (1)
  - Hepatic function abnormal [None]
